FAERS Safety Report 6327407-X (Version None)
Quarter: 2009Q3

REPORT INFORMATION
  Report Type: 
  Country: None (occurrence: None)
  Receive Date: 20090821
  Receipt Date: 20090810
  Transmission Date: 20100115
  Serious: Yes (Death)
  Sender: FDA-Public Use
  Company Number: ADR11672009

PATIENT
  Age: 49 Year
  Sex: Female

DRUGS (2)
  1. METFORMIN HYDROCHLORIDE [Suspect]
     Indication: DIABETES MELLITUS
     Dosage: 2 G ORAL
     Route: 048
  2. AMISULPRIDE [Concomitant]

REACTIONS (2)
  - DRUG LEVEL INCREASED [None]
  - DRUG TOXICITY [None]
